FAERS Safety Report 7141079-6 (Version None)
Quarter: 2010Q4

REPORT INFORMATION
  Report Type: 
  Country: None (occurrence: None)
  Receive Date: 20101122
  Receipt Date: 20101108
  Transmission Date: 20110411
  Serious: Yes (Death)
  Sender: FDA-Public Use
  Company Number: 752710

PATIENT
  Age: 50 Year
  Sex: Female

DRUGS (3)
  1. OXALIPLATIN [Suspect]
     Indication: PRODUCT USED FOR UNKNOWN INDICATION
  2. CISPLATIN [Suspect]
     Indication: METASTATIC GASTRIC CANCER
  3. XELODA [Suspect]
     Indication: METASTATIC GASTRIC CANCER

REACTIONS (1)
  - CARDIAC ARREST [None]
